FAERS Safety Report 9774277 (Version 3)
Quarter: 2014Q1

REPORT INFORMATION
  Report Type: Spontaneous
  Country: CA (occurrence: CA)
  Receive Date: 20131220
  Receipt Date: 20140307
  Transmission Date: 20141002
  Serious: Yes (Other)
  Sender: FDA-Public Use
  Company Number: CA-ROCHE-1323521

PATIENT
  Age: 59 Year
  Sex: Male

DRUGS (14)
  1. XOLAIR [Suspect]
     Indication: ASTHMA
     Route: 058
     Dates: start: 20130723
  2. XOLAIR [Suspect]
     Route: 065
     Dates: start: 20131029
  3. XOLAIR [Suspect]
     Route: 065
     Dates: start: 20131112
  4. XOLAIR [Suspect]
     Route: 058
     Dates: start: 20131126
  5. XOLAIR [Suspect]
     Route: 058
     Dates: start: 20131210
  6. XOLAIR [Suspect]
     Route: 058
     Dates: start: 20140204
  7. XOLAIR [Suspect]
     Route: 058
     Dates: start: 20140304
  8. SPIRIVA [Concomitant]
  9. ZENHALE [Concomitant]
  10. VENTOLIN [Concomitant]
  11. METFORMIN [Concomitant]
  12. RABEPRAZOLE [Concomitant]
  13. JANUVIA [Concomitant]
  14. ROSUVASTATIN [Concomitant]

REACTIONS (3)
  - Blood pressure systolic increased [Not Recovered/Not Resolved]
  - Weight decreased [Unknown]
  - Wheezing [Unknown]
